FAERS Safety Report 8089240-0 (Version None)
Quarter: 2012Q1

REPORT INFORMATION
  Report Type: 
  Country: None (occurrence: None)
  Receive Date: 20120128
  Receipt Date: 20110706
  Transmission Date: 20120608
  Serious: No
  Sender: FDA-Public Use
  Company Number: US-ABBOTT-11P-163-0837677-00

PATIENT
  Age: 80 Year
  Sex: Male

DRUGS (2)
  1. PREDNISONE [Suspect]
     Indication: PSORIASIS
     Dates: start: 20110701
  2. HUMIRA [Suspect]
     Indication: PSORIASIS
     Dates: start: 20091101

REACTIONS (4)
  - PYREXIA [None]
  - PSORIASIS [None]
  - VOMITING [None]
  - NAUSEA [None]
